FAERS Safety Report 9092558 (Version 1)
Quarter: 2013Q1

REPORT INFORMATION
  Report Type: Spontaneous
  Country: US (occurrence: None)
  Receive Date: 20130213
  Receipt Date: 20130213
  Transmission Date: 20140127
  Serious: Yes (Death, Life-Threatening, Hospitalization, Disabling, Other)
  Sender: FDA-Public Use
  Company Number: None

PATIENT
  Sex: Male
  Weight: 83.92 kg

DRUGS (14)
  1. PRADAXA [Suspect]
     Indication: ATRIAL FIBRILLATION
     Dosage: 150MG 2X/DAY PO
     Route: 048
     Dates: start: 20120413, end: 20120420
  2. ADVAIR [Concomitant]
  3. ASPIRIN [Concomitant]
  4. CARVEDILOL [Concomitant]
  5. DIGOXIN [Concomitant]
  6. FERROUS SULFATE [Concomitant]
  7. FUROSEMIDE [Concomitant]
  8. LISINOPRIL [Concomitant]
  9. MELOXICAM [Concomitant]
  10. SIMVASTATIN [Concomitant]
  11. SPIRIVA [Concomitant]
  12. SPIRONOLACTONE [Concomitant]
  13. VITAMIN D2 [Concomitant]
  14. ZOLPIDEM [Concomitant]

REACTIONS (2)
  - Renal failure acute [None]
  - Haemorrhage [None]
